FAERS Safety Report 7653422-X (Version None)
Quarter: 2011Q3

REPORT INFORMATION
  Report Type: 
  Country: None (occurrence: None)
  Receive Date: 20110803
  Receipt Date: 20110727
  Transmission Date: 20111222
  Serious: Yes (Other)
  Sender: FDA-Public Use
  Company Number: JP-PFIZER INC-2011168976

PATIENT
  Age: 70 Year
  Sex: Female
  Weight: 35 kg

DRUGS (1)
  1. HALCION [Suspect]
     Dosage: 0.75 MG, SINGLE
     Route: 048
     Dates: start: 20110726, end: 20110726

REACTIONS (1)
  - SUICIDE ATTEMPT [None]
